FAERS Safety Report 8022746-9 (Version None)
Quarter: 2012Q1

REPORT INFORMATION
  Report Type: 
  Country: None (occurrence: None)
  Receive Date: 20120104
  Receipt Date: 20110607
  Transmission Date: 20120608
  Serious: Yes (Other)
  Sender: FDA-Public Use
  Company Number: US-CELGENEUS-163-21880-11052290

PATIENT
  Age: 63 Year
  Sex: Male
  Weight: 84.5 kg

DRUGS (6)
  1. ASPIRIN [Concomitant]
     Dosage: 325 MILLIGRAM
     Route: 048
     Dates: start: 20110228
  2. REVLIMID [Suspect]
     Dosage: 25 MILLIGRAM
     Route: 048
     Dates: start: 20110228, end: 20110424
  3. NEURONTIN [Concomitant]
     Dosage: 300 MILLIGRAM
     Route: 065
  4. DEXAMETHASONE [Suspect]
     Dosage: 20 MILLIGRAM
     Route: 048
     Dates: start: 20110228, end: 20110422
  5. VELCADE [Suspect]
     Dosage: 1.3 MILLIGRAM/SQ. METER
     Route: 041
     Dates: start: 20110228, end: 20110414
  6. NEURONTIN [Concomitant]
     Dosage: 600 MILLIGRAM
     Route: 065

REACTIONS (1)
  - PERIPHERAL MOTOR NEUROPATHY [None]
